FAERS Safety Report 4685332-4 (Version None)
Quarter: 2005Q2

REPORT INFORMATION
  Report Type: 
  Country: None (occurrence: None)
  Receive Date: 20050608
  Receipt Date: 20040730
  Transmission Date: 20051028
  Serious: Yes (Hospitalization)
  Sender: FDA-Public Use
  Company Number: FR-ROCHE-376212

PATIENT
  Age: 65 Year
  Sex: Female
  Weight: 80 kg

DRUGS (2)
  1. PEG-INTERFERON ALFA 2A (RO 25-8310) [Suspect]
     Dosage: FORMULATION: SYRINGE.
     Route: 058
     Dates: start: 20040109
  2. PEG-INTERFERON ALFA 2A (RO 25-8310) [Suspect]
     Route: 058
     Dates: start: 20040206, end: 20040705

REACTIONS (14)
  - ANXIETY [None]
  - ASTHENIA [None]
  - ERYSIPELAS [None]
  - HEMIPARESIS [None]
  - HEPATIC NEOPLASM MALIGNANT [None]
  - NEURITIS [None]
  - OSTEOARTHRITIS [None]
  - PAIN IN EXTREMITY [None]
  - PARAESTHESIA [None]
  - POLYARTHRITIS [None]
  - RADICULITIS [None]
  - RED BLOOD CELL SEDIMENTATION RATE INCREASED [None]
  - THROMBOCYTOPENIC PURPURA [None]
  - VASCULITIS [None]
